FAERS Safety Report 10471960 (Version 1)
Quarter: 2014Q3

REPORT INFORMATION
  Report Type: Spontaneous
  Country: JP (occurrence: JP)
  Receive Date: 20140924
  Receipt Date: 20140924
  Transmission Date: 20150326
  Serious: Yes (Death, Hospitalization)
  Sender: FDA-Public Use
  Company Number: JP-ORION CORPORATION ORION PHARMA-ENT 2014-0140

PATIENT
  Age: 58 Year
  Sex: Male

DRUGS (1)
  1. COMTAN [Suspect]
     Active Substance: ENTACAPONE
     Indication: PARKINSON^S DISEASE
     Route: 048
     Dates: end: 20140822

REACTIONS (10)
  - Wrong technique in drug usage process [Unknown]
  - Psychiatric symptom [Unknown]
  - Diet refusal [Unknown]
  - Persecutory delusion [Unknown]
  - Dehydration [Unknown]
  - Saliva discolouration [Recovered/Resolved]
  - Refusal of treatment by patient [Unknown]
  - General physical condition abnormal [Unknown]
  - Pneumonia aspiration [Fatal]
  - Foreign body [Unknown]
